FAERS Safety Report 13188029 (Version 1)
Quarter: 2017Q1

REPORT INFORMATION
  Report Type: Spontaneous
  Country: US (occurrence: US)
  Receive Date: 20170206
  Receipt Date: 20170206
  Transmission Date: 20170428
  Serious: Yes (Hospitalization, Other)
  Sender: FDA-Public Use
  Company Number: US-TEVA-735778USA

PATIENT
  Age: 43 Year
  Sex: Male

DRUGS (2)
  1. BUPRENORPHINE. [Suspect]
     Active Substance: BUPRENORPHINE
     Indication: DRUG DEPENDENCE
     Route: 058
  2. BUPRENORPHINE. [Suspect]
     Active Substance: BUPRENORPHINE
     Indication: DRUG DEPENDENCE
     Route: 060

REACTIONS (5)
  - Aspergillus infection [Recovering/Resolving]
  - Candida infection [Recovering/Resolving]
  - Skin mass [Recovering/Resolving]
  - Drug abuse [Recovering/Resolving]
  - Incorrect route of drug administration [Recovering/Resolving]
